FAERS Safety Report 7912359-9 (Version None)
Quarter: 2011Q4

REPORT INFORMATION
  Report Type: 
  Country: None (occurrence: None)
  Receive Date: 20111114
  Receipt Date: 20110802
  Transmission Date: 20120403
  Serious: No
  Sender: FDA-Public Use
  Company Number: US-BAYER-2011-070718

PATIENT
  Age: 74 Year
  Sex: Male
  Weight: 83 kg

DRUGS (2)
  1. ALEVE (CAPLET) [Suspect]
     Indication: BACK PAIN
     Dosage: UNK UNK, QD
     Route: 048
     Dates: start: 20110731, end: 20110731
  2. HYDROCODONE BITARTRATE [Concomitant]

REACTIONS (1)
  - EPIGASTRIC DISCOMFORT [None]
